FAERS Safety Report 7053220-4 (Version None)
Quarter: 2010Q4

REPORT INFORMATION
  Report Type: 
  Country: None (occurrence: None)
  Receive Date: 20101020
  Receipt Date: 20101011
  Transmission Date: 20110411
  Serious: Yes (Hospitalization)
  Sender: FDA-Public Use
  Company Number: KP-ASTRAZENECA-2010SE47831

PATIENT
  Age: 26608 Day
  Sex: Male

DRUGS (6)
  1. CRESTOR [Suspect]
     Indication: HYPERLIPIDAEMIA
     Route: 048
     Dates: start: 20050525
  2. CICIBON [Concomitant]
     Indication: RENAL FAILURE CHRONIC
     Dates: start: 20050525
  3. FURIX [Concomitant]
     Indication: RENAL FAILURE CHRONIC
     Dates: start: 20050525
  4. OLDECA [Concomitant]
     Indication: HYPERTENSION
     Dates: start: 20050525
  5. TEVETEN [Concomitant]
     Indication: HYPERTENSION
     Dates: start: 20050525
  6. BEECOM [Concomitant]
     Indication: NUTRITIONAL SUPPORT
     Dates: start: 20050525

REACTIONS (1)
  - GOUTY ARTHRITIS [None]
